FAERS Safety Report 13702781 (Version 1)
Quarter: 2017Q2

REPORT INFORMATION
  Report Type: Spontaneous
  Country: US (occurrence: US)
  Receive Date: 20170629
  Receipt Date: 20170629
  Transmission Date: 20170830
  Serious: Yes (Other)
  Sender: FDA-Public Use
  Company Number: US-ELI_LILLY_AND_COMPANY-US201706008916

PATIENT
  Sex: Female

DRUGS (4)
  1. METOPROLOL. [Concomitant]
     Active Substance: METOPROLOL
  2. BABY ASPIRIN [Concomitant]
     Active Substance: ASPIRIN
  3. EFFIENT [Suspect]
     Active Substance: PRASUGREL HYDROCHLORIDE
     Indication: STENT PLACEMENT
     Dosage: 10 MG, UNKNOWN
     Route: 048
     Dates: start: 20170118
  4. VALSARTAN. [Concomitant]
     Active Substance: VALSARTAN
     Dosage: 10 MG, UNK
     Route: 048
     Dates: start: 20170118

REACTIONS (14)
  - Chest pain [Recovered/Resolved]
  - Blood pressure decreased [Recovered/Resolved]
  - Cough [Not Recovered/Not Resolved]
  - Dizziness [Recovered/Resolved]
  - Blood pressure increased [Recovered/Resolved]
  - Contusion [Not Recovered/Not Resolved]
  - Loss of consciousness [Recovered/Resolved]
  - Scar [Not Recovered/Not Resolved]
  - Drug dispensing error [Unknown]
  - Fatigue [Not Recovered/Not Resolved]
  - Petechiae [Not Recovered/Not Resolved]
  - Incorrect product storage [Unknown]
  - Blister [Not Recovered/Not Resolved]
  - Respiratory disorder [Not Recovered/Not Resolved]

NARRATIVE: CASE EVENT DATE: 201705
